FAERS Safety Report 4284918-9 (Version None)
Quarter: 2004Q1

REPORT INFORMATION
  Report Type: 
  Country: None (occurrence: None)
  Receive Date: 20040121
  Receipt Date: 20030122
  Transmission Date: 20041129
  Serious: Yes (Hospitalization)
  Sender: FDA-Public Use
  Company Number: A03200300139

PATIENT
  Age: 60 Year
  Sex: Male

DRUGS (11)
  1. PLAVIX [Suspect]
     Indication: CORONARY ANGIOPLASTY
     Dosage: 75 MG/DAY - ORAL
     Route: 048
     Dates: start: 20030116, end: 20030120
  2. HEPARIN [Concomitant]
  3. ABCIXIMAB [Concomitant]
  4. ACETYLSALICYLIC ACID SRT [Concomitant]
  5. PREDNISONE [Concomitant]
  6. DAPSONE [Concomitant]
  7. FUROSEMIDE [Concomitant]
  8. METOPROLOL [Concomitant]
  9. ATORVASTATIN [Concomitant]
  10. ESOMEPRAZOLE [Concomitant]
  11. INSULIN INJECTION, ISOPHANE [Concomitant]

REACTIONS (3)
  - EPISTAXIS [None]
  - HAEMATURIA [None]
  - THROMBOTIC THROMBOCYTOPENIC PURPURA [None]
